FAERS Safety Report 17083934 (Version 3)
Quarter: 2020Q4

REPORT INFORMATION
  Report Type: Spontaneous
  Country: DE (occurrence: DE)
  Receive Date: 20191127
  Receipt Date: 20201028
  Transmission Date: 20210113
  Serious: Yes (Other)
  Sender: FDA-Public Use
  Company Number: PHHY2019DE162730

PATIENT
  Age: 36 Year
  Sex: Male

DRUGS (6)
  1. IMATINIB. [Suspect]
     Active Substance: IMATINIB MESYLATE
     Indication: INFANTILE FIBROMATOSIS
     Dosage: 400 MG, QD (TABLET)
     Route: 065
  2. IMATINIB. [Suspect]
     Active Substance: IMATINIB MESYLATE
     Indication: LEIOMYOMA
  3. IMATINIB. [Suspect]
     Active Substance: IMATINIB MESYLATE
     Indication: SPINAL CORD NEOPLASM
  4. IMATINIB. [Suspect]
     Active Substance: IMATINIB MESYLATE
     Indication: PLATELET-DERIVED GROWTH FACTOR RECEPTOR GENE MUTATION
  5. IMATINIB. [Suspect]
     Active Substance: IMATINIB MESYLATE
     Indication: SYSTEMIC SCLERODERMA
     Dosage: 300 MG, QD (AFTER 1 MONTH)
     Route: 065
  6. IMATINIB. [Suspect]
     Active Substance: IMATINIB MESYLATE
     Indication: INFLAMMATORY MYOFIBROBLASTIC TUMOUR
     Dosage: 200 MG, QD (AFTER 4 MONTHS)
     Route: 065

REACTIONS (12)
  - Drug ineffective for unapproved indication [Unknown]
  - Muscle spasms [Recovering/Resolving]
  - Fatigue [Recovering/Resolving]
  - Decreased appetite [Recovering/Resolving]
  - Nausea [Unknown]
  - Product use in unapproved indication [Unknown]
  - Therapeutic response decreased [Unknown]
  - Drug ineffective [Unknown]
  - Blood creatine phosphokinase increased [Recovering/Resolving]
  - Drug intolerance [Unknown]
  - Off label use [Unknown]
  - Dysgeusia [Recovering/Resolving]
